FAERS Safety Report 12936816 (Version 1)
Quarter: 2016Q4

REPORT INFORMATION
  Report Type: Spontaneous
  Country: US (occurrence: US)
  Receive Date: 20161114
  Receipt Date: 20161114
  Transmission Date: 20170207
  Serious: No
  Sender: FDA-Public Use
  Company Number: US-BAUSCH-BL-2016-020783

PATIENT
  Age: 64 Year
  Sex: Male

DRUGS (2)
  1. MIOCHOL E [Suspect]
     Active Substance: ACETYLCHOLINE CHLORIDE
     Indication: MIOSIS
  2. MIOCHOL E [Suspect]
     Active Substance: ACETYLCHOLINE CHLORIDE
     Indication: POSTOPERATIVE CARE
     Dosage: ONE APPLICATION TO THE LEFT EYE.
     Route: 047
     Dates: start: 20160825, end: 20160825

REACTIONS (4)
  - Vision blurred [Not Recovered/Not Resolved]
  - Halo vision [Not Recovered/Not Resolved]
  - Corneal oedema [Not Recovered/Not Resolved]
  - Toxicity to various agents [Not Recovered/Not Resolved]

NARRATIVE: CASE EVENT DATE: 20160825
